FAERS Safety Report 10252293 (Version 1)
Quarter: 2014Q2

REPORT INFORMATION
  Report Type: Spontaneous
  Country: GB (occurrence: None)
  Receive Date: 20140619
  Receipt Date: 20140619
  Transmission Date: 20141212
  Serious: Yes (Other)
  Sender: FDA-Public Use
  Company Number: AUR-APL-2014-06446

PATIENT
  Sex: Female

DRUGS (1)
  1. PERINDOPRIL (PERINDOPRIL) [Suspect]
     Indication: HYPERTENSION

REACTIONS (1)
  - Orthostatic hypotension [None]
